FAERS Safety Report 4471909-8 (Version None)
Quarter: 2004Q4

REPORT INFORMATION
  Report Type: 
  Country: None (occurrence: None)
  Receive Date: 20041006
  Receipt Date: 20040923
  Transmission Date: 20050328
  Serious: Yes (Other)
  Sender: FDA-Public Use
  Company Number: 2003119654

PATIENT
  Age: 72 Year
  Sex: Female
  Weight: 90.7194 kg

DRUGS (21)
  1. LIPITOR [Suspect]
     Indication: BLOOD CHOLESTEROL
     Dosage: 10 MG, ORAL
     Route: 048
     Dates: start: 20030901, end: 20040327
  2. ZOLOFT [Concomitant]
     Indication: FIBROMYALGIA
     Dosage: 50 MG (1 IN 1 D), ORAL
     Route: 048
     Dates: start: 20040101
  3. ZOLOFT [Concomitant]
     Indication: SERUM SEROTONIN INCREASED
     Dosage: 50 MG (1 IN 1 D), ORAL
     Route: 048
     Dates: start: 20040101
  4. CELECOXIB (CELECOXIB) [Suspect]
     Indication: ARTHRITIS
  5. CELECOXIB (CELECOXIB) [Suspect]
     Indication: FIBROMYALGIA
  6. ACETAMINOPHEN [Concomitant]
  7. ATENOLOL [Concomitant]
  8. DILTIAZEM HYDROCHLORIDE [Concomitant]
  9. DYAZIDE (HYDROCHLOROTHIAZIDE) [Concomitant]
  10. CLONAZEPAM [Concomitant]
  11. VITAMINS (VITAMINS) [Concomitant]
  12. CALCIUM (CALCIUM) [Concomitant]
  13. TOCOPHEROL CONCENTRATE CAP [Concomitant]
  14. FLUTICASONE PROPIONATE [Concomitant]
  15. LORATADINE [Concomitant]
  16. ACETAMINOPHEN [Concomitant]
  17. IBUPROFEN [Concomitant]
  18. ASPIRIN [Concomitant]
  19. ZINC (ZINC) [Concomitant]
  20. OTHER ANTIHYPERTENSIVES (OTHER ANTIHYPERTENSIVES) [Concomitant]
  21. DRUG UNSPECIFIED (DRUG UNSPECIFIED) [Concomitant]

REACTIONS (14)
  - ASTHENIA [None]
  - ATRIAL FIBRILLATION [None]
  - CRYING [None]
  - DISEASE RECURRENCE [None]
  - DRUG EFFECT DECREASED [None]
  - DRUG INEFFECTIVE [None]
  - FEELING ABNORMAL [None]
  - INSOMNIA [None]
  - LOGORRHOEA [None]
  - MENTAL IMPAIRMENT [None]
  - MUSCLE DISORDER [None]
  - THERMAL BURN [None]
  - TREATMENT NONCOMPLIANCE [None]
  - UNEXPECTED THERAPEUTIC DRUG EFFECT [None]
